FAERS Safety Report 6406258-1 (Version None)
Quarter: 2009Q4

REPORT INFORMATION
  Report Type: 
  Country: None (occurrence: None)
  Receive Date: 20091019
  Receipt Date: 20091007
  Transmission Date: 20100525
  Serious: Yes (Other)
  Sender: FDA-Public Use
  Company Number: PHHY2009JP43610

PATIENT
  Age: 84 Year
  Sex: Male

DRUGS (3)
  1. ZOMETA [Suspect]
     Indication: METASTASES TO BONE
     Dosage: 4 MG, QMO
     Route: 042
     Dates: start: 20070801, end: 20090701
  2. DUROTEP [Concomitant]
     Route: 062
  3. FENTANYL CITRATE [Concomitant]
     Route: 048

REACTIONS (2)
  - OSTEOMYELITIS [None]
  - TOOTH LOSS [None]
